FAERS Safety Report 13486469 (Version 1)
Quarter: 2017Q2

REPORT INFORMATION
  Report Type: Spontaneous
  Country: FR (occurrence: FR)
  Receive Date: 20170426
  Receipt Date: 20170426
  Transmission Date: 20170830
  Serious: Yes (Hospitalization, Other)
  Sender: FDA-Public Use
  Company Number: FR-ELI_LILLY_AND_COMPANY-FR201704006625

PATIENT
  Age: 62 Year
  Sex: Female

DRUGS (1)
  1. ZYPADHERA [Suspect]
     Active Substance: OLANZAPINE PAMOATE
     Indication: PRODUCT USED FOR UNKNOWN INDICATION
     Dosage: 300 MG, CYCLICAL
     Route: 030
     Dates: start: 201609

REACTIONS (10)
  - Tremor [Recovered/Resolved]
  - Injection related reaction [Recovered/Resolved]
  - Gait disturbance [Unknown]
  - Syncope [Recovered/Resolved]
  - Balance disorder [Recovered/Resolved]
  - Headache [Recovered/Resolved]
  - Extrapyramidal disorder [Unknown]
  - Dizziness [Recovered/Resolved]
  - Dysarthria [Recovered/Resolved]
  - Asthenia [Not Recovered/Not Resolved]

NARRATIVE: CASE EVENT DATE: 20170405
